FAERS Safety Report 7828654-8 (Version None)
Quarter: 2011Q4

REPORT INFORMATION
  Report Type: 
  Country: None (occurrence: None)
  Receive Date: 20111020
  Receipt Date: 20111012
  Transmission Date: 20120403
  Serious: Yes (Hospitalization, Other)
  Sender: FDA-Public Use
  Company Number: JP-JNJFOC-20100906522

PATIENT
  Sex: Female
  Weight: 53 kg

DRUGS (13)
  1. DOXORUBICIN HCL [Suspect]
     Dosage: CYCLE 2
     Route: 042
     Dates: start: 20100225, end: 20100225
  2. CIPROFLOXACIN HCL [Concomitant]
     Indication: PROPHYLAXIS
     Route: 048
     Dates: start: 20100227, end: 20100301
  3. DOXORUBICIN HCL [Suspect]
     Dosage: CYCLE 2
     Route: 042
     Dates: start: 20100114, end: 20100114
  4. MAGMITT [Concomitant]
     Indication: PROPHYLAXIS
     Route: 048
     Dates: start: 20090709
  5. SAIREI-TO [Concomitant]
     Indication: PRODUCT USED FOR UNKNOWN INDICATION
     Route: 048
     Dates: start: 20100202, end: 20100330
  6. CLARITHROMYCIN [Concomitant]
     Indication: PROPHYLAXIS
     Route: 048
     Dates: start: 20100215, end: 20100222
  7. AZUNOL [Concomitant]
     Indication: PROPHYLAXIS
     Route: 049
     Dates: start: 20091111, end: 20100224
  8. BENADRYL HCL [Concomitant]
     Indication: PROPHYLAXIS
     Route: 048
     Dates: start: 20091214, end: 20100224
  9. KAKKON-TO [Concomitant]
     Indication: PROPHYLAXIS
     Route: 048
     Dates: start: 20100223, end: 20100228
  10. DOXORUBICIN HCL [Suspect]
     Indication: OVARIAN CANCER RECURRENT
     Dosage: CYCLE 1
     Route: 042
     Dates: start: 20091112, end: 20091112
  11. NEUROVITAN [Concomitant]
     Indication: PROPHYLAXIS
     Route: 048
     Dates: start: 20091112, end: 20100226
  12. MOBIC [Concomitant]
     Indication: OVARIAN CANCER RECURRENT
     Route: 048
     Dates: start: 20090709
  13. DOXORUBICIN HCL [Suspect]
     Dosage: CYCLE 2
     Route: 042
     Dates: start: 20091215, end: 20091215

REACTIONS (2)
  - INTERSTITIAL LUNG DISEASE [None]
  - PALMAR-PLANTAR ERYTHRODYSAESTHESIA SYNDROME [None]
